FAERS Safety Report 17064270 (Version 1)
Quarter: 2019Q4

REPORT INFORMATION
  Report Type: Spontaneous
  Country: DE (occurrence: DE)
  Receive Date: 20191122
  Receipt Date: 20191122
  Transmission Date: 20200122
  Serious: Yes (Other)
  Sender: FDA-Public Use
  Company Number: DE-PFIZER INC-2019500263

PATIENT
  Age: 86 Year
  Sex: Male
  Weight: 99 kg

DRUGS (3)
  1. VANCOMYCIN [Suspect]
     Active Substance: VANCOMYCIN
     Dosage: 1 G, 2X/DAY (INITIALLY)
  2. PIPERACILLIN/TAZOBACTAM [Suspect]
     Active Substance: PIPERACILLIN SODIUM\TAZOBACTAM SODIUM
     Dosage: 4.5 G, 4X/DAY
  3. VANCOMYCIN [Suspect]
     Active Substance: VANCOMYCIN
     Dosage: UNK (DOSE ADJUSTED BASED ON TROUGH-LEVEL)

REACTIONS (3)
  - Renal injury [Unknown]
  - Condition aggravated [Unknown]
  - Thrombocytopenia [Unknown]
